FAERS Safety Report 9483869 (Version 2)
Quarter: 2013Q3

REPORT INFORMATION
  Report Type: Spontaneous
  Country: CA (occurrence: CA)
  Receive Date: 20130828
  Receipt Date: 20130828
  Transmission Date: 20140515
  Serious: Yes (Other)
  Sender: FDA-Public Use
  Company Number: CA-AMGEN-KDL274544

PATIENT
  Age: 59 Year
  Sex: Female
  Weight: 77.2 kg

DRUGS (4)
  1. ENBREL [Suspect]
     Indication: PSORIASIS
     Dosage: 50 MG, QWK
     Route: 058
     Dates: start: 20080108, end: 200903
  2. CELECOXIB [Concomitant]
     Dosage: UNK UNK, UNK
  3. ANTIHYPERTENSIVE MEDICATION NOS [Concomitant]
  4. UNSPECIFIED MEDICATION [Concomitant]

REACTIONS (3)
  - Tuberculosis [Unknown]
  - Drug ineffective [Unknown]
  - Therapeutic response delayed [Not Recovered/Not Resolved]
